FAERS Safety Report 14120854 (Version 1)
Quarter: 2017Q4

REPORT INFORMATION
  Report Type: Spontaneous
  Country: US (occurrence: US)
  Receive Date: 20171024
  Receipt Date: 20171024
  Transmission Date: 20180321
  Serious: Yes (Other)
  Sender: FDA-Public Use
  Company Number: US-TEVA-817605USA

PATIENT
  Age: 62 Year
  Sex: Male

DRUGS (1)
  1. HYDROMORPHONE [Suspect]
     Active Substance: HYDROMORPHONE
     Indication: BACK PAIN
     Route: 013

REACTIONS (8)
  - Arterial occlusive disease [Unknown]
  - Peripheral ischaemia [Unknown]
  - Incorrect route of drug administration [Unknown]
  - Peripheral artery thrombosis [Unknown]
  - Vasculitis [Unknown]
  - Wrong technique in product usage process [Unknown]
  - Drug abuse [Unknown]
  - Extremity necrosis [Unknown]
